FAERS Safety Report 15497169 (Version 2)
Quarter: 2019Q1

REPORT INFORMATION
  Report Type: Spontaneous
  Country: FR (occurrence: FR)
  Receive Date: 20181015
  Receipt Date: 20190227
  Transmission Date: 20190417
  Serious: Yes (Hospitalization)
  Sender: FDA-Public Use
  Company Number: FR-AUROBINDO-AUR-APL-2018-049934

PATIENT

DRUGS (2)
  1. DINOPROSTONE. [Suspect]
     Active Substance: DINOPROSTONE
     Indication: ABORTED PREGNANCY
     Dosage: UNK
     Route: 065
     Dates: start: 20180713, end: 20180713
  2. IBUPROFEN. [Suspect]
     Active Substance: IBUPROFEN
     Indication: PRODUCT USED FOR UNKNOWN INDICATION
     Dosage: 3.4 GRAM, ONCE A DAY
     Route: 048
     Dates: start: 20180714, end: 20180714

REACTIONS (4)
  - Abdominal pain upper [Recovered/Resolved]
  - Abortion induced [Not Recovered/Not Resolved]
  - Headache [Recovered/Resolved]
  - Vertigo [Recovered/Resolved]

NARRATIVE: CASE EVENT DATE: 20180713
